FAERS Safety Report 16025420 (Version 3)
Quarter: 2019Q2

REPORT INFORMATION
  Report Type: Report from Study
  Country: None (occurrence: US)
  Receive Date: 20190301
  Receipt Date: 20190513
  Transmission Date: 20190711
  Serious: No
  Sender: FDA-Public Use
  Company Number: US-ABBVIE-19K-163-2684725-00

PATIENT
  Age: 63 Year
  Sex: Female
  Weight: 145.28 kg

DRUGS (1)
  1. HUMIRA [Suspect]
     Active Substance: ADALIMUMAB
     Indication: RHEUMATOID ARTHRITIS
     Dosage: HUMIRA CF PEN
     Route: 058

REACTIONS (4)
  - Mobility decreased [Unknown]
  - Heart rate decreased [Recovered/Resolved]
  - Urticaria [Recovered/Resolved]
  - Asthenia [Unknown]
